APPROVED DRUG PRODUCT: CALCITRIOL
Active Ingredient: CALCITRIOL
Strength: 0.001MG/ML
Dosage Form/Route: INJECTABLE;INJECTION
Application: A075746 | Product #001
Applicant: AMERICAN REGENT INC
Approved: Sep 26, 2003 | RLD: No | RS: No | Type: DISCN